FAERS Safety Report 17102419 (Version 1)
Quarter: 2019Q4

REPORT INFORMATION
  Report Type: Spontaneous
  Country: US (occurrence: US)
  Receive Date: 20191202
  Receipt Date: 20191202
  Transmission Date: 20200122
  Serious: No
  Sender: FDA-Public Use
  Company Number: US-PTC THERAPEUTICS, INC.-US-2019PTC001338

PATIENT
  Age: 20 Year
  Sex: Male

DRUGS (1)
  1. EMFLAZA [Suspect]
     Active Substance: DEFLAZACORT
     Indication: DUCHENNE MUSCULAR DYSTROPHY
     Dosage: 1.5 ML, QOD
     Route: 048
     Dates: start: 20181002

REACTIONS (3)
  - Alopecia [Unknown]
  - Skin irritation [Unknown]
  - Off label use [Unknown]

NARRATIVE: CASE EVENT DATE: 201909
